FAERS Safety Report 5466590-5 (Version None)
Quarter: 2007Q3

REPORT INFORMATION
  Report Type: 
  Country: None (occurrence: None)
  Receive Date: 20070925
  Receipt Date: 20070918
  Transmission Date: 20080115
  Serious: Yes (Other)
  Sender: FDA-Public Use
  Company Number: PHBS2007JP15512

PATIENT
  Sex: Female

DRUGS (1)
  1. ZOMETA [Suspect]
     Indication: METASTASES TO BONE
     Dosage: 4 MG, QD
     Route: 042

REACTIONS (4)
  - ORAL SURGERY [None]
  - OSTEONECROSIS [None]
  - PAIN [None]
  - TOOTHACHE [None]
